FAERS Safety Report 9060221 (Version 1)
Quarter: 2013Q1

REPORT INFORMATION
  Report Type: Spontaneous
  Country: US (occurrence: US)
  Receive Date: 20130212
  Receipt Date: 20130212
  Transmission Date: 20140127
  Serious: Yes (Other)
  Sender: FDA-Public Use
  Company Number: US-ABBOTT-13P-163-1045914-00

PATIENT
  Sex: Female

DRUGS (1)
  1. DEPAKOTE ER [Suspect]
     Indication: MIGRAINE

REACTIONS (6)
  - Consciousness fluctuating [Unknown]
  - Local swelling [Unknown]
  - Feeling abnormal [Unknown]
  - Mood swings [Unknown]
  - Mental status changes [Unknown]
  - Off label use [Unknown]
